FAERS Safety Report 5818759-5 (Version None)
Quarter: 2008Q3

REPORT INFORMATION
  Report Type: 
  Country: None (occurrence: None)
  Receive Date: 20080721
  Receipt Date: 20080721
  Transmission Date: 20090109
  Serious: Yes (Other)
  Sender: FDA-Public Use
  Company Number: None

PATIENT
  Sex: Female

DRUGS (5)
  1. DEPAKOTE ER [Suspect]
     Indication: ABNORMAL BEHAVIOUR
     Dosage: 1000MG AT BEDTIME PO
     Route: 048
     Dates: start: 20080301, end: 20080519
  2. DEPAKOTE ER [Suspect]
     Indication: AFFECTIVE DISORDER
     Dosage: 1000MG AT BEDTIME PO
     Route: 048
     Dates: start: 20080301, end: 20080519
  3. SEROQUEL [Suspect]
     Indication: ABNORMAL BEHAVIOUR
     Dosage: 150MG AM AND 350MG HS PO
     Route: 048
     Dates: start: 20080301, end: 20080527
  4. SEROQUEL [Suspect]
     Indication: AFFECTIVE DISORDER
     Dosage: 150MG AM AND 350MG HS PO
     Route: 048
     Dates: start: 20080301, end: 20080527
  5. ATOMOXETINE HCL [Concomitant]

REACTIONS (2)
  - NEUTROPHIL COUNT DECREASED [None]
  - WHITE BLOOD CELL COUNT DECREASED [None]
